FAERS Safety Report 21042468 (Version 1)
Quarter: 2022Q3

REPORT INFORMATION
  Report Type: Spontaneous
  Country: US (occurrence: None)
  Receive Date: 20220701
  Receipt Date: 20220701
  Transmission Date: 20221027
  Serious: Yes (Hospitalization)
  Sender: FDA-Public Use
  Company Number: None

PATIENT
  Sex: Female

DRUGS (1)
  1. EPINEPHRINE [Suspect]
     Active Substance: EPINEPHRINE
     Indication: Complement fixation abnormal
     Dosage: FREQUENCY : AS NEEDED;?
     Route: 030
     Dates: start: 202204

REACTIONS (4)
  - Cough [None]
  - Asthenia [None]
  - Headache [None]
  - Abdominal distension [None]
